FAERS Safety Report 9187408 (Version 3)
Quarter: 2015Q2

REPORT INFORMATION
  Report Type: Spontaneous
  Country: US (occurrence: US)
  Receive Date: 20121119
  Receipt Date: 20150403
  Transmission Date: 20150821
  Serious: Yes (Other)
  Sender: FDA-Public Use
  Company Number: US-RB-046810-12

PATIENT
  Age: 0 Year
  Sex: Female
  Weight: 2.37 kg

DRUGS (6)
  1. ALBUTEROL                          /00139501/ [Suspect]
     Active Substance: ALBUTEROL
     Indication: ASTHMA
     Dosage: DOSING DETAILS UNKNOWN
     Route: 064
     Dates: start: 20120430, end: 20121009
  2. NICOTINE. [Suspect]
     Active Substance: NICOTINE
     Indication: PRODUCT USED FOR UNKNOWN INDICATION
     Dosage: 10 UNIT, QD
     Route: 064
     Dates: start: 2012, end: 20121009
  3. BUPRENORPHINE GENERIC TAB [Suspect]
     Active Substance: BUPRENORPHINE
     Indication: PRODUCT USED FOR UNKNOWN INDICATION
     Dosage: DOSING DETAILS UNKNOWN
     Route: 063
  4. SUBUTEX [Suspect]
     Active Substance: BUPRENORPHINE HYDROCHLORIDE
     Indication: DRUG DEPENDENCE
     Dosage: 4 MG, DAILY
     Route: 064
     Dates: start: 20120423, end: 20121009
  5. PRENATAL VITAMINS /07499601/ [Suspect]
     Active Substance: VITAMINS
     Indication: PREGNANCY
     Dosage: DOSING DETAILS UNKNOWN
     Route: 064
     Dates: start: 2012, end: 20121009
  6. NARCOTICS [Suspect]
     Active Substance: UNSPECIFIED INGREDIENT
     Indication: PRODUCT USED FOR UNKNOWN INDICATION
     Dosage: DOSING DETAILS UNKNOWN
     Route: 064
     Dates: start: 2012, end: 20120423

REACTIONS (6)
  - Maternal drugs affecting foetus [None]
  - Caesarean section [None]
  - Exposure during breast feeding [Not Recovered/Not Resolved]
  - Low birth weight baby [Recovered/Resolved]
  - Umbilical cord around neck [Recovered/Resolved]
  - Foetal exposure during pregnancy [Recovered/Resolved]

NARRATIVE: CASE EVENT DATE: 201210
